FAERS Safety Report 17873259 (Version 1)
Quarter: 2020Q2

REPORT INFORMATION
  Report Type: Report from Study
  Country: JP (occurrence: JP)
  Receive Date: 20200608
  Receipt Date: 20200608
  Transmission Date: 20200714
  Serious: Yes (Death, Hospitalization, Other)
  Sender: FDA-Public Use
  Company Number: JP-AMGEN-JPNCT2020090009

PATIENT
  Age: 86 Year
  Sex: Male

DRUGS (25)
  1. FAROM [Concomitant]
     Active Substance: FAROPENEM SODIUM
     Indication: INFECTION
     Dosage: 600 MG
     Route: 048
     Dates: start: 20150803, end: 20150807
  2. CRESTOR [Concomitant]
     Active Substance: ROSUVASTATIN CALCIUM
     Dosage: 2.5 MG
     Route: 048
     Dates: end: 20160501
  3. LOXONIN [Concomitant]
     Active Substance: LOXOPROFEN SODIUM
     Dosage: 100 MG
     Dates: end: 20160501
  4. METHYCOBAL [Concomitant]
     Active Substance: METHYLCOBALAMIN
     Dosage: 1500 UG
     Route: 048
     Dates: start: 20150810
  5. FLOMOX [Concomitant]
     Dosage: 300 MG
     Route: 048
     Dates: start: 20151130, end: 20151204
  6. DARBEPOETIN ALFA [Suspect]
     Active Substance: DARBEPOETIN ALFA
     Dosage: 240 MILLIGRAM, Q2WK
     Route: 058
     Dates: start: 20151130, end: 20151228
  7. BAYASPIRIN [Concomitant]
     Active Substance: ASPIRIN
     Dosage: 100 MG
     Route: 048
  8. ADONA [Concomitant]
     Indication: HAEMORRHAGIC DIATHESIS
     Dosage: 90 MILLIGRAM
     Route: 048
     Dates: start: 20151228, end: 20160214
  9. DIFLUCAN [Concomitant]
     Active Substance: FLUCONAZOLE
     Dosage: 100 MG
     Route: 048
     Dates: start: 20160307, end: 20160406
  10. DARBEPOETIN ALFA [Suspect]
     Active Substance: DARBEPOETIN ALFA
     Dosage: UNK, Q2WK
     Route: 058
     Dates: start: 20160118, end: 20160201
  11. CLEANAL [Concomitant]
     Active Substance: FUDOSTEINE
     Dosage: 1200 MG
     Route: 048
     Dates: start: 20150803, end: 20150807
  12. FAROM [Concomitant]
     Active Substance: FAROPENEM SODIUM
     Dosage: 1200 MG
     Route: 048
     Dates: start: 20160307, end: 20160313
  13. LYRICA [Concomitant]
     Active Substance: PREGABALIN
     Dosage: 150 MG
     Route: 048
     Dates: end: 20150907
  14. YOKUKANSAN [Concomitant]
     Active Substance: HERBALS
     Dosage: 7.5 G
     Route: 048
     Dates: start: 20151010
  15. RISPERDAL [Concomitant]
     Active Substance: RISPERIDONE
     Dosage: 0.5 MG
     Route: 048
     Dates: start: 20151016
  16. DARBEPOETIN ALFA [Suspect]
     Active Substance: DARBEPOETIN ALFA
     Indication: MYELODYSPLASTIC SYNDROME
     Dosage: 240 MILLIGRAM
     Route: 058
     Dates: start: 20150730, end: 20150730
  17. DARBEPOETIN ALFA [Suspect]
     Active Substance: DARBEPOETIN ALFA
     Dosage: 240 MILLIGRAM, QWK
     Route: 058
     Dates: start: 20150803, end: 20150810
  18. DARBEPOETIN ALFA [Suspect]
     Active Substance: DARBEPOETIN ALFA
     Dosage: 240 MILLIGRAM, Q2WK
     Route: 058
     Dates: start: 20150824, end: 20150907
  19. DARBEPOETIN ALFA [Suspect]
     Active Substance: DARBEPOETIN ALFA
     Dosage: 240 MILLIGRAM
     Route: 058
     Dates: start: 20150928, end: 20150928
  20. FAROM [Concomitant]
     Active Substance: FAROPENEM SODIUM
     Indication: PNEUMONIA
     Dosage: 600 MG
     Route: 048
     Dates: start: 20151230, end: 20160102
  21. FLOMOX [Concomitant]
     Indication: INFECTION
     Dosage: 300 MG
     Route: 048
     Dates: start: 20151102, end: 20151108
  22. SHAKUYAKUKANZOTO [Concomitant]
     Active Substance: HERBALS
     Dosage: 5 G
     Route: 048
     Dates: end: 20150907
  23. DESYREL [Concomitant]
     Active Substance: TRAZODONE HYDROCHLORIDE
     Dosage: 25 MG
     Route: 048
     Dates: start: 20151019
  24. GRACEVIT [Concomitant]
     Active Substance: SITAFLOXACIN
     Indication: PNEUMONIA
     Dosage: 100 MG
     Route: 048
     Dates: start: 20160220, end: 20160307
  25. DARBEPOETIN ALFA [Suspect]
     Active Substance: DARBEPOETIN ALFA
     Dosage: 240 MILLIGRAM
     Route: 058
     Dates: start: 20160107, end: 20160107

REACTIONS (4)
  - Cerebral infarction [Recovering/Resolving]
  - Pneumonia [Recovered/Resolved]
  - Pneumonia [Fatal]
  - Sepsis [Recovered/Resolved]

NARRATIVE: CASE EVENT DATE: 20151012
